FAERS Safety Report 9077221 (Version 1)
Quarter: 2013Q1

REPORT INFORMATION
  Report Type: Spontaneous
  Country: US (occurrence: US)
  Receive Date: 20130130
  Receipt Date: 20130130
  Transmission Date: 20140127
  Serious: Yes (Other)
  Sender: FDA-Public Use
  Company Number: US-MERCK-1208USA007925

PATIENT
  Sex: Male
  Weight: 81.63 kg

DRUGS (4)
  1. PEGINTRON [Suspect]
     Indication: HEPATITIS C
     Dosage: REDIPEN
     Dates: start: 20120302, end: 20121012
  2. VICTRELIS [Suspect]
     Indication: HEPATITIS C
     Dosage: UNK
     Dates: start: 20120330, end: 20121012
  3. VICTRELIS [Suspect]
     Dosage: UNK
  4. RIBAVIRIN [Suspect]
     Indication: HEPATITIS C
     Dosage: UNK
     Dates: start: 20120302, end: 20121012

REACTIONS (22)
  - Thinking abnormal [Unknown]
  - Gingival recession [Unknown]
  - Diplopia [Unknown]
  - Hypersomnia [Unknown]
  - Polyuria [Unknown]
  - Vision blurred [Unknown]
  - Dyspepsia [Unknown]
  - Anaemia [Unknown]
  - Thirst [Unknown]
  - Weight decreased [Unknown]
  - Dyspnoea [Unknown]
  - Asthenia [Unknown]
  - Decreased appetite [Unknown]
  - Nausea [Unknown]
  - Influenza like illness [Unknown]
  - Diarrhoea [Unknown]
  - Dizziness [Unknown]
  - Anxiety [Unknown]
  - Rash [Unknown]
  - Rash [Unknown]
  - Pyrexia [Unknown]
  - Infection [Unknown]
